FAERS Safety Report 5411733-2 (Version None)
Quarter: 2007Q3

REPORT INFORMATION
  Report Type: 
  Country: None (occurrence: None)
  Receive Date: 20070813
  Receipt Date: 20070806
  Transmission Date: 20080115
  Serious: Yes (Other)
  Sender: FDA-Public Use
  Company Number: PHBS2007ZA12103

PATIENT
  Age: 60 Year
  Sex: Male
  Weight: 101 kg

DRUGS (3)
  1. TAREG [Suspect]
     Indication: HYPERTENSION
     Dosage: 160 MG/DAY
     Route: 048
     Dates: start: 20070528, end: 20070710
  2. ZETOMAX [Concomitant]
     Dosage: 20 MG, UNK
  3. DIOVAN [Concomitant]
     Dosage: 160 MG, UNK

REACTIONS (3)
  - BRONCHITIS [None]
  - COUGH [None]
  - PNEUMONIA [None]
